FAERS Safety Report 16940206 (Version 1)
Quarter: 2019Q4

REPORT INFORMATION
  Report Type: Report from Study
  Country: US (occurrence: US)
  Receive Date: 20191021
  Receipt Date: 20191021
  Transmission Date: 20200122
  Serious: Yes (Other)
  Sender: FDA-Public Use
  Company Number: US-ROCHE-2440473

PATIENT
  Age: 51 Year
  Sex: Female
  Weight: 81.72 kg

DRUGS (11)
  1. OCREVUS [Suspect]
     Active Substance: OCRELIZUMAB
     Dosage: FOLLOWED BY 300 MG LATER
     Route: 042
  2. KEPPRA [Concomitant]
     Active Substance: LEVETIRACETAM
     Indication: SEIZURE
     Dosage: ONGOING: YES
     Route: 048
     Dates: start: 20190101
  3. CALCIUM CARBONATE. [Concomitant]
     Active Substance: CALCIUM CARBONATE
     Dosage: ONGOING: YES
     Route: 065
     Dates: start: 20181001
  4. VITAMIN D3 [Concomitant]
     Active Substance: CHOLECALCIFEROL
     Dosage: ONGOING: YES
     Route: 048
     Dates: start: 20180101
  5. OCREVUS [Suspect]
     Active Substance: OCRELIZUMAB
     Indication: RELAPSING-REMITTING MULTIPLE SCLEROSIS
     Route: 042
     Dates: start: 20190312
  6. POTASSIUM [Concomitant]
     Active Substance: POTASSIUM
     Dosage: ONGOING: YES
     Route: 048
     Dates: start: 20190601
  7. PROTONIX [Concomitant]
     Active Substance: PANTOPRAZOLE SODIUM
     Dosage: ONGOING: YES
     Route: 048
     Dates: start: 20190301
  8. BACLOFEN. [Concomitant]
     Active Substance: BACLOFEN
     Indication: PAIN
     Dosage: ONGOING: YES
     Route: 048
     Dates: start: 20190201
  9. ZOCOR [Concomitant]
     Active Substance: SIMVASTATIN
     Dosage: ONGOING: YES
     Route: 048
     Dates: start: 20180901
  10. LASIX [Concomitant]
     Active Substance: FUROSEMIDE
     Indication: PERIPHERAL SWELLING
     Dosage: ONGOING: YES
     Route: 048
     Dates: start: 20190601
  11. GABAPENTIN. [Concomitant]
     Active Substance: GABAPENTIN
     Dosage: ONGOING: YES
     Route: 048
     Dates: start: 20190301

REACTIONS (2)
  - Multiple sclerosis relapse [Recovered/Resolved]
  - Herpes ophthalmic [Not Recovered/Not Resolved]

NARRATIVE: CASE EVENT DATE: 201909
